FAERS Safety Report 5648741-2 (Version None)
Quarter: 2008Q1

REPORT INFORMATION
  Report Type: 
  Country: None (occurrence: None)
  Receive Date: 20080229
  Receipt Date: 20080213
  Transmission Date: 20080703
  Serious: Yes (Hospitalization)
  Sender: FDA-Public Use
  Company Number: S08-UKI-00702-01

PATIENT
  Age: 54 Year
  Sex: Female
  Weight: 66 kg

DRUGS (2)
  1. CITALOPRAM HYDROBROMIDE [Suspect]
     Dosage: 20 MG QD PO
     Route: 048
     Dates: start: 20071218
  2. CANNABIS [Suspect]
     Dosage: 1 UNK ONCE IH
     Route: 055
     Dates: start: 20071226, end: 20071226

REACTIONS (7)
  - APHAGIA [None]
  - DIZZINESS [None]
  - DRUG ABUSE [None]
  - HYPERHIDROSIS [None]
  - SYNCOPE [None]
  - SYNCOPE VASOVAGAL [None]
  - TACHYCARDIA [None]
